FAERS Safety Report 4611750-6 (Version None)
Quarter: 2005Q1

REPORT INFORMATION
  Report Type: 
  Country: None (occurrence: None)
  Receive Date: 20050308
  Receipt Date: 20041209
  Transmission Date: 20050727
  Serious: Yes (Other)
  Sender: FDA-Public Use
  Company Number: 2004UW25214

PATIENT
  Sex: Female

DRUGS (3)
  1. CRESTOR [Suspect]
  2. ANGIOTENSIN II RECEPTOR BLOCKERS [Concomitant]
  3. VIOXX [Concomitant]

REACTIONS (3)
  - BLOOD CREATININE INCREASED [None]
  - BLOOD UREA INCREASED [None]
  - RENAL IMPAIRMENT [None]
